FAERS Safety Report 25107315 (Version 2)
Quarter: 2025Q2

REPORT INFORMATION
  Report Type: Report from Study
  Country: CZ (occurrence: CZ)
  Receive Date: 20250321
  Receipt Date: 20250416
  Transmission Date: 20250717
  Serious: Yes (Other)
  Sender: ABBVIE
  Company Number: CZ-ABBVIE-6181533

PATIENT
  Age: 31 Year
  Sex: Female
  Weight: 61 kg

DRUGS (1)
  1. RINVOQ [Suspect]
     Active Substance: UPADACITINIB
     Indication: Dermatitis atopic
     Route: 058
     Dates: start: 20240925, end: 20250219

REACTIONS (1)
  - Cutaneous T-cell lymphoma [Unknown]

NARRATIVE: CASE EVENT DATE: 20250108
